FAERS Safety Report 16030945 (Version 1)
Quarter: 2019Q1

REPORT INFORMATION
  Report Type: Spontaneous
  Country: US (occurrence: US)
  Receive Date: 20190304
  Receipt Date: 20190304
  Transmission Date: 20190418
  Serious: No
  Sender: FDA-Public Use
  Company Number: US-PFIZER INC-2019092161

PATIENT
  Age: 55 Year
  Sex: Female

DRUGS (2)
  1. CAMPTOSAR [Suspect]
     Active Substance: IRINOTECAN HYDROCHLORIDE
     Indication: RECTOSIGMOID CANCER
     Dosage: 100 MG, UNK
  2. CAMPTOSAR [Suspect]
     Active Substance: IRINOTECAN HYDROCHLORIDE
     Dosage: 40 MG, UNK

REACTIONS (1)
  - Pain [Unknown]
